FAERS Safety Report 6987648-5 (Version None)
Quarter: 2010Q3

REPORT INFORMATION
  Report Type: 
  Country: None (occurrence: None)
  Receive Date: 20100914
  Receipt Date: 20100902
  Transmission Date: 20110219
  Serious: Yes (Hospitalization)
  Sender: FDA-Public Use
  Company Number: 015069

PATIENT
  Age: 42 Year
  Sex: Female

DRUGS (2)
  1. LACOSAMIDE [Suspect]
     Indication: CONVULSION
     Dosage: ORAL, 200 MG BID, 2 PILLS IN AM AND 2 PILLS IN PM, 100 MG FORMULATION, ORAL
     Route: 048
     Dates: start: 20091201
  2. DILANTIN [Concomitant]

REACTIONS (3)
  - DRUG DOSE OMISSION [None]
  - GRAND MAL CONVULSION [None]
  - PETIT MAL EPILEPSY [None]
